FAERS Safety Report 21263722 (Version 2)
Quarter: 2022Q3

REPORT INFORMATION
  Report Type: Spontaneous
  Country: GB (occurrence: GB)
  Receive Date: 20220829
  Receipt Date: 20220906
  Transmission Date: 20221026
  Serious: Yes (Hospitalization, Other)
  Sender: FDA-Public Use
  Company Number: GB-Actavis-081796

PATIENT

DRUGS (12)
  1. ATORVASTATIN [Suspect]
     Active Substance: ATORVASTATIN
     Indication: Product used for unknown indication
     Dosage: 10MG, THREE AT NIGHT
     Route: 065
     Dates: start: 20220726, end: 20220727
  2. CHOLECALCIFEROL [Suspect]
     Active Substance: CHOLECALCIFEROL
     Indication: Product used for unknown indication
     Dosage: 800- 1 ONE IN MORNING
     Route: 065
     Dates: start: 20220726, end: 20220727
  3. GLICLAZIDE [Suspect]
     Active Substance: GLICLAZIDE
     Indication: Product used for unknown indication
     Dosage: GLICLAZIDE 60 MR - ONE MORNING AND NIGHT
     Route: 065
     Dates: start: 20220726, end: 20220727
  4. CARBIDOPA\LEVODOPA [Suspect]
     Active Substance: CARBIDOPA\LEVODOPA
     Indication: Product used for unknown indication
     Dosage: CO-CARELDOPA 12.5/50MG - 2 IN MORNING
     Route: 065
     Dates: start: 20220726, end: 20220727
  5. LEVOTHYROXINE [Suspect]
     Active Substance: LEVOTHYROXINE
     Indication: Product used for unknown indication
     Dosage: ONE DAILY
     Route: 065
     Dates: start: 20220726, end: 20220727
  6. LEVOTHYROXINE [Suspect]
     Active Substance: LEVOTHYROXINE
     Dosage: ONE DAILY
     Route: 065
     Dates: start: 20220726, end: 20220727
  7. METFORMIN [Suspect]
     Active Substance: METFORMIN HYDROCHLORIDE
     Indication: Product used for unknown indication
     Dosage: ONE DAILY
     Route: 065
     Dates: start: 20220726, end: 20220727
  8. SITAGLIPTIN [Suspect]
     Active Substance: SITAGLIPTIN
     Indication: Product used for unknown indication
     Dosage: 2 MORNING AND 1 AT NIGHT
     Route: 065
     Dates: start: 20220726, end: 20220727
  9. SENNA [Suspect]
     Active Substance: SENNA LEAF\SENNOSIDES\SENNOSIDES A AND B
     Indication: Product used for unknown indication
     Dosage: 2 AT NIGHT
     Route: 065
     Dates: start: 20220726, end: 20220727
  10. AMITRIPTYLINE [Concomitant]
     Active Substance: AMITRIPTYLINE
     Indication: Product used for unknown indication
     Dosage: 3 AT NIGHT
     Route: 065
  11. APIXABAN [Concomitant]
     Active Substance: APIXABAN
     Indication: Product used for unknown indication
     Dosage: 2.5MG - ONE TWICE DAILY
     Route: 065
  12. ACETAMINOPHEN [Concomitant]
     Active Substance: ACETAMINOPHEN
     Indication: Product used for unknown indication
     Dosage: 2 X 500MG THREE TIMES A DAY
     Route: 065

REACTIONS (6)
  - Wrong patient received product [Unknown]
  - Loss of consciousness [Recovered/Resolved]
  - Wrong product administered [Unknown]
  - Product dispensing error [Recovered/Resolved]
  - Medication error [Unknown]
  - Circulatory collapse [Recovered/Resolved]

NARRATIVE: CASE EVENT DATE: 20220726
